FAERS Safety Report 6974893-8 (Version None)
Quarter: 2010Q3

REPORT INFORMATION
  Report Type: 
  Country: None (occurrence: None)
  Receive Date: 20100909
  Receipt Date: 20090105
  Transmission Date: 20110219
  Serious: No
  Sender: FDA-Public Use
  Company Number: US-WYE-H07537109

PATIENT
  Sex: Male
  Weight: 93.07 kg

DRUGS (6)
  1. PROTONIX [Suspect]
     Indication: GASTROOESOPHAGEAL REFLUX DISEASE
     Route: 048
     Dates: start: 20030101
  2. FENOFIBRATE [Concomitant]
  3. ASPIRIN [Concomitant]
  4. VALIUM [Concomitant]
  5. HYDROCODONE [Concomitant]
  6. PLAVIX [Concomitant]

REACTIONS (1)
  - DRUG SCREEN POSITIVE [None]
